FAERS Safety Report 4423593-7 (Version None)
Quarter: 2004Q3

REPORT INFORMATION
  Report Type: 
  Country: None (occurrence: None)
  Receive Date: 20040805
  Receipt Date: 20040725
  Transmission Date: 20050211
  Serious: Yes (Other)
  Sender: FDA-Public Use
  Company Number: JP-JNJFOC-20040800011

PATIENT
  Age: 26 Year
  Sex: Female

DRUGS (1)
  1. ITRACONAZOLE [Suspect]
     Indication: ONYCHOMYCOSIS
     Dosage: 200 MG, 2 IN 1  DAY, ORAL
     Route: 048
     Dates: start: 20040712, end: 20040718

REACTIONS (6)
  - HYPERNATRAEMIA [None]
  - HYPOKALAEMIA [None]
  - OEDEMA PERIPHERAL [None]
  - PSEUDOALDOSTERONISM [None]
  - URINE OUTPUT DECREASED [None]
  - WEIGHT INCREASED [None]
